FAERS Safety Report 16246216 (Version 1)
Quarter: 2019Q2

REPORT INFORMATION
  Report Type: Spontaneous
  Country: CA (occurrence: CA)
  Receive Date: 20190426
  Receipt Date: 20190426
  Transmission Date: 20190711
  Serious: Yes (Life-Threatening, Hospitalization, Other)
  Sender: FDA-Public Use
  Company Number: CA-B.I. PHARMACEUTICALS,INC./RIDGEFIELD-2019-BI-019208

PATIENT
  Age: 10 Year
  Sex: Male

DRUGS (7)
  1. CHLORAL HYDRATE [Suspect]
     Active Substance: CHLORAL HYDRATE
     Indication: DYSTONIA
     Route: 048
  2. KETAMINE [Suspect]
     Active Substance: KETAMINE
     Indication: DYSTONIA
     Route: 065
  3. DEXMEDETOMIDINE. [Concomitant]
     Active Substance: DEXMEDETOMIDINE
     Indication: DYSTONIA
     Dosage: DOSE OF DEXMEDETOMIDINE :1.2 UG/KG, ROUTE OF ADMINISTRATION FOR DEXMEDETOMIDINE :INTRAVENOUS DRIP
     Route: 042
  4. APO-MIDAZOLAM [Suspect]
     Active Substance: MIDAZOLAM HYDROCHLORIDE
     Indication: DYSTONIA
     Dosage: DOSAGE FORM: LIQUID INTRAMUSCULAR, ROUTE OF ADMINISTRATION: INTRAVENOUS BOLUS, STRENGTH: 1MG/ML
     Route: 042
  5. CATAPRESAN [Suspect]
     Active Substance: CLONIDINE
     Indication: DYSTONIA
     Route: 048
  6. LORAZEPAM. [Suspect]
     Active Substance: LORAZEPAM
     Indication: DYSTONIA
     Route: 048
  7. CHLORPROMAZINE. [Suspect]
     Active Substance: CHLORPROMAZINE
     Indication: HYPERKINESIA
     Dosage: DOSAGE FORM: NOT SPECIFIED
     Route: 065

REACTIONS (3)
  - Dystonia [Recovered/Resolved]
  - Condition aggravated [Recovered/Resolved]
  - Treatment failure [Recovered/Resolved]
